FAERS Safety Report 6112170-8 (Version None)
Quarter: 2009Q1

REPORT INFORMATION
  Report Type: 
  Country: None (occurrence: None)
  Receive Date: 20090310
  Receipt Date: 20090223
  Transmission Date: 20090719
  Serious: Yes (Hospitalization)
  Sender: FDA-Public Use
  Company Number: 230018K09USA

PATIENT
  Age: 52 Year
  Sex: Female
  Weight: 101 kg

DRUGS (5)
  1. REBIF [Suspect]
     Indication: MULTIPLE SCLEROSIS
     Dosage: 44 MCG, 3 IN 1 WEEKS, SUBCUTANEOUS
     Route: 058
     Dates: start: 20080815
  2. NAPROXEN [Suspect]
     Indication: HEADACHE
     Dosage: 500 MG, AS REQUIRED, ORAL
     Route: 048
     Dates: end: 20081201
  3. EXCEDRIN (MIGRAINE) [Suspect]
     Dates: end: 20081201
  4. ASPIRIN [Suspect]
     Indication: HEADACHE
     Dosage: 325 MG, AS REQUIRED, ORAL
     Route: 048
     Dates: end: 20081201
  5. SOLU-MEDROL [Suspect]
     Indication: MULTIPLE SCLEROSIS
     Dosage: 1000, 1 IN 1 MONTHS, INTRAVENOUS
     Route: 042
     Dates: start: 20080101

REACTIONS (1)
  - DUODENAL ULCER HAEMORRHAGE [None]
